FAERS Safety Report 9353696 (Version 1)
Quarter: 2013Q2

REPORT INFORMATION
  Report Type: Spontaneous
  Country: US (occurrence: None)
  Receive Date: 20130617
  Receipt Date: 20130617
  Transmission Date: 20140414
  Serious: Yes (Hospitalization)
  Sender: FDA-Public Use
  Company Number: None

PATIENT
  Age: 74 Year
  Sex: Male
  Weight: 90.72 kg

DRUGS (1)
  1. DEPAKOTE [Suspect]

REACTIONS (9)
  - Hyperhidrosis [None]
  - Pruritus [None]
  - Alopecia [None]
  - Irritability [None]
  - Hypertension [None]
  - Increased appetite [None]
  - Local swelling [None]
  - Joint swelling [None]
  - Local swelling [None]
